FAERS Safety Report 6390944-6 (Version None)
Quarter: 2009Q4

REPORT INFORMATION
  Report Type: 
  Country: None (occurrence: None)
  Receive Date: 20091001
  Receipt Date: 20090609
  Transmission Date: 20100525
  Serious: No
  Sender: FDA-Public Use
  Company Number: 1000006695

PATIENT
  Age: 81 Year
  Sex: Female

DRUGS (3)
  1. BYSTOLIC [Suspect]
     Indication: TACHYCARDIA
     Dosage: ( 1 IN 1 D), ORAL
     Route: 048
     Dates: start: 20090501
  2. COUMADIN [Concomitant]
  3. DIGOXIN [Concomitant]

REACTIONS (3)
  - HALLUCINATION [None]
  - PHOTOPHOBIA [None]
  - VISUAL ACUITY REDUCED [None]
